FAERS Safety Report 24222626 (Version 1)
Quarter: 2024Q3

REPORT INFORMATION
  Report Type: Spontaneous
  Country: US (occurrence: None)
  Receive Date: 20240816
  Receipt Date: 20240816
  Transmission Date: 20241016
  Serious: Yes (Hospitalization)
  Sender: Public
  Company Number: None

PATIENT
  Age: 45 Year
  Sex: Male
  Weight: 90.9 kg

DRUGS (2)
  1. BRAFTOVI [Suspect]
     Active Substance: ENCORAFENIB
     Indication: Metastases to central nervous system
     Dosage: 450 MG DAILY ORAL ?
     Route: 048
     Dates: start: 20220825, end: 20240720
  2. MEKTOVI [Suspect]
     Active Substance: BINIMETINIB
     Dates: start: 20220831, end: 20240720

REACTIONS (3)
  - Pancreatitis acute [None]
  - Diarrhoea [None]
  - Therapy interrupted [None]

NARRATIVE: CASE EVENT DATE: 20240720
